FAERS Safety Report 24266966 (Version 1)
Quarter: 2024Q3

REPORT INFORMATION
  Report Type: Report from Study
  Country: CA (occurrence: CA)
  Receive Date: 20240830
  Receipt Date: 20240830
  Transmission Date: 20241016
  Serious: Yes (Hospitalization)
  Sender: GILEAD
  Company Number: CA-GILEAD-2024-0685152

PATIENT
  Sex: Male

DRUGS (1)
  1. SOFOSBUVIR\VELPATASVIR [Suspect]
     Active Substance: SOFOSBUVIR\VELPATASVIR
     Indication: Hepatitis C
     Dosage: UNK
     Route: 065
     Dates: start: 20240724

REACTIONS (4)
  - Oedema peripheral [Unknown]
  - Abdominal distension [Unknown]
  - Nausea [Unknown]
  - Fatigue [Unknown]
